FAERS Safety Report 9189322 (Version 1)
Quarter: 2013Q1

REPORT INFORMATION
  Report Type: Spontaneous
  Country: FR (occurrence: FR)
  Receive Date: 20130326
  Receipt Date: 20130326
  Transmission Date: 20140127
  Serious: Yes (Other)
  Sender: FDA-Public Use
  Company Number: FR-JNJFOC-20130313268

PATIENT
  Sex: Male

DRUGS (2)
  1. XARELTO [Suspect]
     Indication: DEEP VEIN THROMBOSIS
     Route: 048
  2. PREVISCAN (FLUINDIONE) [Concomitant]
     Route: 065

REACTIONS (3)
  - Pulmonary embolism [Unknown]
  - Pulmonary infarction [Unknown]
  - Drug ineffective [Unknown]
